FAERS Safety Report 18678144 (Version 1)
Quarter: 2020Q4

REPORT INFORMATION
  Report Type: Spontaneous
  Country: US (occurrence: US)
  Receive Date: 20201229
  Receipt Date: 20201229
  Transmission Date: 20210114
  Serious: Yes (Other)
  Sender: FDA-Public Use
  Company Number: US-BELCHER PHARMACEUTICALS, LLC-2020US008603

PATIENT

DRUGS (1)
  1. EPINEPHRINE INJECTION USP [Suspect]
     Active Substance: EPINEPHRINE
     Indication: CATARACT OPERATION
     Dosage: 1 MG/ML
     Dates: start: 20200930, end: 20200930

REACTIONS (2)
  - Endophthalmitis [Unknown]
  - Product complaint [Unknown]

NARRATIVE: CASE EVENT DATE: 20200930
